FAERS Safety Report 5566855-2 (Version None)
Quarter: 2007Q4

REPORT INFORMATION
  Report Type: 
  Country: None (occurrence: None)
  Receive Date: 20071219
  Receipt Date: 20071210
  Transmission Date: 20080405
  Serious: Yes (Hospitalization)
  Sender: FDA-Public Use
  Company Number: US-ROCHE-536129

PATIENT
  Age: 35 Year
  Sex: Female

DRUGS (2)
  1. PEG-INTERFERON A-2A (RO 25-8310) [Suspect]
     Dosage: REPORTED AS PEGASYS. IN WEEK 8 OF THERAPY.
     Route: 065
     Dates: start: 20071017
  2. RIBAVIRIN [Suspect]
     Dosage: REPORTED AS COPEGUS. IN WEEK 8 OF THERAPY.
     Route: 065
     Dates: start: 20071017

REACTIONS (1)
  - FALL [None]
